FAERS Safety Report 8926627 (Version 2)
Quarter: 2012Q4

REPORT INFORMATION
  Report Type: Report from Study
  Country: US (occurrence: US)
  Receive Date: 20121127
  Receipt Date: 20121129
  Transmission Date: 20130627
  Serious: Yes (Hospitalization, Other)
  Sender: FDA-Public Use
  Company Number: US-ROCHE-1155158

PATIENT
  Age: 67 Year
  Sex: Female
  Weight: 95 kg

DRUGS (2)
  1. BEVACIZUMAB [Suspect]
     Indication: PANCREATIC NEOPLASM
     Dosage: over 30-90 mins on day 1 and day 15
     Route: 042
     Dates: start: 20120208
  2. TEMSIROLIMUS [Suspect]
     Indication: PANCREATIC NEOPLASM
     Dosage: ovr day1,8,15,22
     Route: 042
     Dates: start: 20110208

REACTIONS (4)
  - Oedema peripheral [Unknown]
  - Hyponatraemia [Recovered/Resolved]
  - Weight increased [Unknown]
  - Hypertension [Unknown]
